FAERS Safety Report 13771040 (Version 3)
Quarter: 2017Q3

REPORT INFORMATION
  Report Type: Report from Study
  Country: None (occurrence: US)
  Receive Date: 20170720
  Receipt Date: 20170929
  Transmission Date: 20171127
  Serious: Yes (Hospitalization, Other)
  Sender: FDA-Public Use
  Company Number: US-ABBVIE-17K-163-2003919-00

PATIENT
  Sex: Female

DRUGS (1)
  1. HUMIRA [Suspect]
     Active Substance: ADALIMUMAB
     Indication: RHEUMATOID ARTHRITIS
     Route: 058

REACTIONS (10)
  - Drug ineffective [Unknown]
  - Back pain [Unknown]
  - Gastrointestinal haemorrhage [Unknown]
  - Impaired healing [Unknown]
  - Haematemesis [Unknown]
  - Wound infection bacterial [Recovering/Resolving]
  - Arthralgia [Unknown]
  - Alopecia [Unknown]
  - Malaise [Unknown]
  - Gastrointestinal ulcer [Unknown]

NARRATIVE: CASE EVENT DATE: 2017
